FAERS Safety Report 6952580-X (Version None)
Quarter: 2010Q3

REPORT INFORMATION
  Report Type: 
  Country: None (occurrence: None)
  Receive Date: 20100829
  Receipt Date: 20100508
  Transmission Date: 20110219
  Serious: No
  Sender: FDA-Public Use
  Company Number: US-ABBOTT-10P-163-0643248-00

PATIENT
  Sex: Female

DRUGS (2)
  1. NIASPAN [Suspect]
     Indication: PRODUCT USED FOR UNKNOWN INDICATION
     Dosage: QHS
     Route: 048
     Dates: start: 20100505
  2. CARBIDOPA [Concomitant]
     Indication: PARKINSON'S DISEASE

REACTIONS (2)
  - DYSKINESIA [None]
  - HALLUCINATION [None]
